FAERS Safety Report 7203366-2 (Version None)
Quarter: 2010Q4

REPORT INFORMATION
  Report Type: 
  Country: None (occurrence: None)
  Receive Date: 20101216
  Receipt Date: 20101201
  Transmission Date: 20110411
  Serious: Yes (Death)
  Sender: FDA-Public Use
  Company Number: AUR-APL-2010-03002

PATIENT
  Age: 53 Year

DRUGS (4)
  1. SERTRALINE HYDROCHLORIDE [Suspect]
     Indication: SUICIDAL IDEATION
     Dosage: 150MG-TOOK 1 DOSE-
  2. FLUOXETINE [Suspect]
     Indication: SUICIDAL IDEATION
     Dosage: 30MG-TOOK 1 DOSE-
  3. JATROSOM [Suspect]
     Indication: SUICIDAL IDEATION
     Dosage: 70MG-
  4. TYRAMINE-RICH AILMENTS [Suspect]
     Indication: SUICIDAL IDEATION

REACTIONS (7)
  - ALCOHOL POISONING [None]
  - CARDIAC ARREST [None]
  - COMPLETED SUICIDE [None]
  - FOOD INTERACTION [None]
  - HAEMORRHAGE [None]
  - RESPIRATORY FAILURE [None]
  - SEROTONIN SYNDROME [None]
